FAERS Safety Report 16983710 (Version 1)
Quarter: 2019Q4

REPORT INFORMATION
  Report Type: Spontaneous
  Country: US (occurrence: US)
  Receive Date: 20190917
  Receipt Date: 20190917
  Transmission Date: 20200122
  Serious: No
  Sender: FDA-Public Use
  Company Number: None

PATIENT
  Age: 86 Year
  Sex: Male

DRUGS (1)
  1. ABIRATERONE 250MG TAB [Suspect]
     Active Substance: ABIRATERONE
     Route: 048
     Dates: start: 20190724

REACTIONS (4)
  - Dry throat [None]
  - Oropharyngeal pain [None]
  - Dysphonia [None]
  - Cough [None]

NARRATIVE: CASE EVENT DATE: 20190730
